FAERS Safety Report 25590219 (Version 3)
Quarter: 2025Q3

REPORT INFORMATION
  Report Type: Spontaneous
  Country: EU (occurrence: EU)
  Receive Date: 20250722
  Receipt Date: 20250828
  Transmission Date: 20251021
  Serious: Yes (Death, Other)
  Sender: IPSEN BIOPHARMACEUTICALS, INC.
  Company Number: EU-SERVIER-S25010239

PATIENT
  Age: 47 Year
  Sex: Male

DRUGS (3)
  1. IRINOTECAN [Suspect]
     Active Substance: IRINOTECAN
     Indication: Ductal adenocarcinoma of pancreas
     Dosage: 70 MG/M2, EVERY 2 WEEKS
     Dates: start: 20240122, end: 20250127
  2. FLUOROURACIL [Concomitant]
     Active Substance: FLUOROURACIL
     Indication: Ductal adenocarcinoma of pancreas
     Dosage: 2400 MG/M2, EVERY 2 WEEKS
     Dates: start: 20240622, end: 20250127
  3. LEUCOVORIN [Concomitant]
     Active Substance: LEUCOVORIN\LEUCOVORIN CALCIUM
     Indication: Ductal adenocarcinoma of pancreas
     Dates: start: 20240122, end: 20250127

REACTIONS (2)
  - Malignant neoplasm progression [Fatal]
  - Carbohydrate antigen 19-9 increased [Not Recovered/Not Resolved]

NARRATIVE: CASE EVENT DATE: 20250127
